FAERS Safety Report 8791163 (Version 1)
Quarter: 2012Q4

REPORT INFORMATION
  Report Type: Spontaneous
  Country: US (occurrence: None)
  Receive Date: 20120907
  Receipt Date: 20120907
  Transmission Date: 20130627
  Serious: Yes (Other)
  Sender: FDA-Public Use
  Company Number: DSA_59278_2012

PATIENT

DRUGS (5)
  1. FLUOROURACIL [Suspect]
     Indication: PANCREATIC CARCINOMA METASTATIC
     Route: 040
  2. FLUOROURACIL [Suspect]
     Indication: PANCREATIC CARCINOMA METASTATIC
     Route: 042
  3. CALCIUM FOLINATE [Suspect]
  4. OXALIPLATIN [Suspect]
  5. IRINOTECAN [Suspect]

REACTIONS (1)
  - Fatigue [None]
